FAERS Safety Report 23139499 (Version 2)
Quarter: 2023Q4

REPORT INFORMATION
  Report Type: Spontaneous
  Country: PL (occurrence: PL)
  Receive Date: 20231102
  Receipt Date: 20231129
  Transmission Date: 20240109
  Serious: Yes (Other)
  Sender: FDA-Public Use
  Company Number: PL-BoehringerIngelheim-2023-BI-270742

PATIENT
  Age: 67 Year
  Sex: Female

DRUGS (1)
  1. JARDIANCE [Suspect]
     Active Substance: EMPAGLIFLOZIN
     Indication: Cardiac failure
     Dosage: THE PATIENT TOOK JARDIANCE FOR ABOUT 12 MONTHS

REACTIONS (1)
  - Sepsis [Unknown]
